FAERS Safety Report 5027059-5 (Version None)
Quarter: 2006Q2

REPORT INFORMATION
  Report Type: 
  Country: None (occurrence: None)
  Receive Date: 20060609
  Receipt Date: 20060530
  Transmission Date: 20061013
  Serious: Yes (Hospitalization)
  Sender: FDA-Public Use
  Company Number: 2006070777

PATIENT
  Age: 71 Year
  Sex: Female
  Weight: 74 kg

DRUGS (7)
  1. PREDNISOLONE [Suspect]
     Indication: NEPHROTIC SYNDROME
     Dosage: 60 MG (60 MG, 1 IN 1 D), ORAL
     Route: 048
     Dates: start: 20060420
  2. FUROSEMIDE [Concomitant]
  3. AMIODARONE HCL [Concomitant]
  4. RAMIPRIL [Concomitant]
  5. CALCICHEW (CALCIUM CARBONATE) [Concomitant]
  6. ALFACALCIDOL (ALFACALCIDOL) [Concomitant]
  7. OMEPRAZOLE [Concomitant]

REACTIONS (4)
  - DEHYDRATION [None]
  - DIABETES MELLITUS [None]
  - FATIGUE [None]
  - LETHARGY [None]
